FAERS Safety Report 5948516-0 (Version None)
Quarter: 2008Q4

REPORT INFORMATION
  Report Type: 
  Country: None (occurrence: None)
  Receive Date: 20081111
  Receipt Date: 20081031
  Transmission Date: 20090506
  Serious: Yes (Other)
  Sender: FDA-Public Use
  Company Number: B0545571A

PATIENT
  Sex: Female

DRUGS (5)
  1. KIVEXA [Suspect]
     Indication: HIV INFECTION
     Dates: start: 20071221, end: 20080429
  2. SUSTIVA [Suspect]
     Indication: HIV INFECTION
     Dates: start: 20071221, end: 20080429
  3. MALOCIDE [Concomitant]
     Dates: start: 20071221
  4. DAPSONE [Concomitant]
     Dates: start: 20071221
  5. RIMIFON [Concomitant]
     Dates: start: 20071221

REACTIONS (1)
  - HEPATOTOXICITY [None]
